FAERS Safety Report 17544382 (Version 1)
Quarter: 2020Q1

REPORT INFORMATION
  Report Type: Spontaneous
  Country: US (occurrence: US)
  Receive Date: 20200316
  Receipt Date: 20200316
  Transmission Date: 20200409
  Serious: Yes (Other)
  Sender: FDA-Public Use
  Company Number: US-JNJFOC-20200307283

PATIENT
  Age: 15 Day
  Sex: Female
  Weight: 2.72 kg

DRUGS (1)
  1. XARELTO [Suspect]
     Active Substance: RIVAROXABAN
     Indication: PRODUCT USED FOR UNKNOWN INDICATION
     Route: 063

REACTIONS (3)
  - Growth retardation [Unknown]
  - Exposure via breast milk [Unknown]
  - Malnutrition [Unknown]

NARRATIVE: CASE EVENT DATE: 20190430
